FAERS Safety Report 15257954 (Version 1)
Quarter: 2018Q3

REPORT INFORMATION
  Report Type: Report from Study
  Country: CA (occurrence: CA)
  Receive Date: 20180808
  Receipt Date: 20180808
  Transmission Date: 20181010
  Serious: Yes (Other)
  Sender: FDA-Public Use
  Company Number: CA-BRISTOL-MYERS SQUIBB COMPANY-BMS-2017-069804

PATIENT
  Age: 64 Year
  Sex: Male

DRUGS (1)
  1. ABATACEPT [Suspect]
     Active Substance: ABATACEPT
     Indication: RHEUMATOID ARTHRITIS
     Dosage: 750 MG, Q4WK
     Route: 042
     Dates: start: 20150330

REACTIONS (8)
  - Amnesia [Unknown]
  - Fall [Recovered/Resolved]
  - Conjunctival hyperaemia [Unknown]
  - Dry eye [Unknown]
  - Arthralgia [Recovered/Resolved]
  - Tremor [Unknown]
  - Spinal pain [Recovered/Resolved]
  - Head injury [Unknown]

NARRATIVE: CASE EVENT DATE: 20170721
